FAERS Safety Report 5927207-6 (Version None)
Quarter: 2008Q4

REPORT INFORMATION
  Report Type: 
  Country: None (occurrence: None)
  Receive Date: 20081022
  Receipt Date: 20081010
  Transmission Date: 20090506
  Serious: Yes (Other)
  Sender: FDA-Public Use
  Company Number: GB-PFIZER INC-2008086013

PATIENT

DRUGS (1)
  1. NEURONTIN [Suspect]
     Indication: EPILEPSY

REACTIONS (2)
  - DYSPHAGIA [None]
  - RESPIRATORY TRACT NEOPLASM [None]
